FAERS Safety Report 11347638 (Version 1)
Quarter: 2015Q3

REPORT INFORMATION
  Report Type: Spontaneous
  Country: US (occurrence: US)
  Receive Date: 20150803
  Receipt Date: 20150803
  Transmission Date: 20151125
  Serious: No
  Sender: FDA-Public Use
  Company Number: US-ELI_LILLY_AND_COMPANY-US201107000225

PATIENT
  Age: 9 Year
  Sex: Male
  Weight: 26.3 kg

DRUGS (1)
  1. STRATTERA [Suspect]
     Active Substance: ATOMOXETINE HYDROCHLORIDE
     Indication: ATTENTION DEFICIT/HYPERACTIVITY DISORDER
     Dosage: 18 MG, BID
     Route: 048
     Dates: start: 20110228, end: 20110624

REACTIONS (2)
  - Tri-iodothyronine increased [Not Recovered/Not Resolved]
  - White blood cell count increased [Recovered/Resolved]
